FAERS Safety Report 17765838 (Version 1)
Quarter: 2020Q2

REPORT INFORMATION
  Report Type: Spontaneous
  Country: US (occurrence: US)
  Receive Date: 20200509
  Receipt Date: 20200509
  Transmission Date: 20200714
  Serious: No
  Sender: FDA-Public Use
  Company Number: None

PATIENT
  Age: 75 Year
  Sex: Female

DRUGS (1)
  1. PROLIA [Suspect]
     Active Substance: DENOSUMAB
     Indication: OSTEOPOROSIS
     Dosage: ?          OTHER FREQUENCY:EVERY 6 MONTHS;?
     Route: 058
     Dates: start: 201912

REACTIONS (7)
  - Pruritus [None]
  - Arthralgia [None]
  - Asthenia [None]
  - Back pain [None]
  - Fatigue [None]
  - Headache [None]
  - Dry skin [None]

NARRATIVE: CASE EVENT DATE: 202002
